FAERS Safety Report 13996229 (Version 2)
Quarter: 2017Q3

REPORT INFORMATION
  Report Type: Spontaneous
  Country: IT (occurrence: IT)
  Receive Date: 20170921
  Receipt Date: 20170929
  Transmission Date: 20171128
  Serious: Yes (Hospitalization)
  Sender: FDA-Public Use
  Company Number: IT-MYLANLABS-2017M1059037

PATIENT
  Age: 92 Year
  Sex: Female
  Weight: 61 kg

DRUGS (1)
  1. LANSOPRAZOLO MYLAN GENERICS 15 MG CAPSULE GASTRORESISTENTI [Suspect]
     Active Substance: LANSOPRAZOLE
     Indication: PRODUCT USED FOR UNKNOWN INDICATION
     Dosage: 15 MG DAILY
     Route: 048

REACTIONS (6)
  - Product substitution issue [None]
  - Anuria [None]
  - Hypochloraemia [None]
  - Hyponatraemia [Recovered/Resolved]
  - Pulmonary embolism [None]
  - Hypotension [None]

NARRATIVE: CASE EVENT DATE: 20170910
